FAERS Safety Report 22539025 (Version 1)
Quarter: 2023Q2

REPORT INFORMATION
  Report Type: Spontaneous
  Country: US (occurrence: US)
  Receive Date: 20230609
  Receipt Date: 20230609
  Transmission Date: 20230722
  Serious: No
  Sender: FDA-Public Use
  Company Number: US-GSK-US2023AMR078604

PATIENT
  Sex: Female

DRUGS (4)
  1. FLOLAN [Suspect]
     Active Substance: EPOPROSTENOL SODIUM
     Indication: Pulmonary arterial hypertension
     Dosage: 29.3 NG/KG/MIN, CO, CONCENTRATION: 45,000 NG/ML PUMP RATE: 60 ML/DAY, VIAL STRENGTH: 1.5 MG
     Dates: start: 20110923
  2. GLYCINE\MANNITOL\SODIUM CHLORIDE [Suspect]
     Active Substance: GLYCINE\MANNITOL\SODIUM CHLORIDE
     Indication: Product used for unknown indication
     Dosage: UNK
  3. ADCIRCA [Concomitant]
     Active Substance: TADALAFIL
     Indication: Product used for unknown indication
     Dosage: UNK
  4. OPSUMIT [Concomitant]
     Active Substance: MACITENTAN
     Indication: Product used for unknown indication
     Dosage: UNK

REACTIONS (6)
  - Upper respiratory tract infection [Unknown]
  - Nasopharyngitis [Unknown]
  - Illness [Unknown]
  - Injection site erythema [Unknown]
  - Injection site rash [Unknown]
  - Chest discomfort [Unknown]
